FAERS Safety Report 18988185 (Version 1)
Quarter: 2021Q1

REPORT INFORMATION
  Report Type: Report from Study
  Country: IT (occurrence: IT)
  Receive Date: 20210309
  Receipt Date: 20210309
  Transmission Date: 20210420
  Serious: Yes (Hospitalization)
  Sender: FDA-Public Use
  Company Number: IT-ORGANON-O2103ITA000283

PATIENT
  Age: 79 Year
  Sex: Female

DRUGS (7)
  1. LEVOPRAID [LEVOSULPIRIDE] [Concomitant]
     Active Substance: LEVOSULPIRIDE
     Dosage: UNK
  2. WARFARIN SODIUM. [Concomitant]
     Active Substance: WARFARIN SODIUM
     Dosage: UNK
  3. NITRAZEPAM [Suspect]
     Active Substance: NITRAZEPAM
     Indication: INTENTIONAL SELF-INJURY
     Dosage: 50 MILLIGRAM; ABUSE/MISUSE
     Route: 048
     Dates: start: 20201222, end: 20201222
  4. RAMIPRIL. [Concomitant]
     Active Substance: RAMIPRIL
     Dosage: 5 MILLIGRAM, QD
  5. MIRTAZAPINE. [Suspect]
     Active Substance: MIRTAZAPINE
     Indication: INTENTIONAL SELF-INJURY
     Dosage: 600 MILLIGRAM;ABUSE/MISUSE
     Route: 048
     Dates: start: 20201222, end: 20201222
  6. QUETIAPINE. [Suspect]
     Active Substance: QUETIAPINE
     Indication: INTENTIONAL SELF-INJURY
     Dosage: 750 MILLIGRAM, ABUSE/MISUSE
     Route: 048
     Dates: start: 20201222, end: 20201222
  7. BISOPROLOL FUMARATE. [Concomitant]
     Active Substance: BISOPROLOL FUMARATE
     Dosage: 1.25 MILLIGRAM, QD
     Route: 048

REACTIONS (4)
  - Bradyphrenia [Unknown]
  - Drug abuse [Unknown]
  - Tachycardia [Unknown]
  - Sopor [Unknown]

NARRATIVE: CASE EVENT DATE: 20201222
